FAERS Safety Report 4903511-5 (Version None)
Quarter: 2006Q1

REPORT INFORMATION
  Report Type: 
  Country: None (occurrence: None)
  Receive Date: 20060203
  Receipt Date: 20060126
  Transmission Date: 20060701
  Serious: Yes (Hospitalization)
  Sender: FDA-Public Use
  Company Number: 200610118BVD

PATIENT
  Age: 55 Year
  Sex: Male

DRUGS (10)
  1. SORAFENIB [Suspect]
     Indication: RENAL CELL CARCINOMA STAGE UNSPECIFIED
     Dosage: 400 MG, BID, ORAL; 400 MG, BID, ORAL
     Route: 048
     Dates: start: 20051217, end: 20060112
  2. SORAFENIB [Suspect]
     Indication: RENAL CELL CARCINOMA STAGE UNSPECIFIED
     Dosage: 400 MG, BID, ORAL; 400 MG, BID, ORAL
     Route: 048
     Dates: start: 20060117
  3. NOVONORM [Concomitant]
  4. BISOPROLOL [Concomitant]
  5. ALLOPURINOL [Concomitant]
  6. EFEROX [Concomitant]
  7. FRAXIPARIN [Concomitant]
  8. SALBUTAMOL [Concomitant]
  9. ATROVENT [Concomitant]
  10. IRON SUPPLEMENT [Concomitant]

REACTIONS (1)
  - GENERAL PHYSICAL HEALTH DETERIORATION [None]
